FAERS Safety Report 6737904-0 (Version None)
Quarter: 2010Q2

REPORT INFORMATION
  Report Type: 
  Country: None (occurrence: None)
  Receive Date: 20100524
  Receipt Date: 20100511
  Transmission Date: 20101027
  Serious: Yes (Other)
  Sender: FDA-Public Use
  Company Number: PHHY2010US25325

PATIENT
  Sex: Male
  Weight: 85.28 kg

DRUGS (1)
  1. AFINITOR [Suspect]
     Indication: RENAL CANCER METASTATIC
     Dosage: 10 MG, QD
     Route: 048
     Dates: start: 20100208, end: 20100405

REACTIONS (3)
  - MALIGNANT NEOPLASM PROGRESSION [None]
  - PENILE OEDEMA [None]
  - SCROTAL OEDEMA [None]
